FAERS Safety Report 5031704-8 (Version None)
Quarter: 2006Q2

REPORT INFORMATION
  Report Type: 
  Country: None (occurrence: None)
  Receive Date: 20060616
  Receipt Date: 20060531
  Transmission Date: 20061013
  Serious: Yes (Hospitalization)
  Sender: FDA-Public Use
  Company Number: US200603005088

PATIENT
  Age: 84 Year
  Sex: Female

DRUGS (3)
  1. FORTEO [Suspect]
     Indication: OSTEOPOROSIS
     Dates: start: 20040901
  2. . [Concomitant]
  3. FORTEO PEN (250MCG/ML) (FORTEO PEN 240 MCG/ML (3ML)) PEN, DISPOSABLE [Concomitant]

REACTIONS (7)
  - CONDITION AGGRAVATED [None]
  - ESSENTIAL TREMOR [None]
  - FALL [None]
  - NERVE INJURY [None]
  - PAIN IN EXTREMITY [None]
  - PHARMACEUTICAL PRODUCT COMPLAINT [None]
  - UPPER LIMB FRACTURE [None]
